FAERS Safety Report 4674426-5 (Version None)
Quarter: 2005Q2

REPORT INFORMATION
  Report Type: 
  Country: None (occurrence: None)
  Receive Date: 20050526
  Receipt Date: 20040527
  Transmission Date: 20051028
  Serious: Yes (Other)
  Sender: FDA-Public Use
  Company Number: PHEH2004US05965

PATIENT
  Age: 83 Year
  Sex: Female

DRUGS (7)
  1. ZOMETA [Suspect]
     Indication: MULTIPLE MYELOMA
     Dosage: 4 MG MONTHLY
     Route: 042
     Dates: start: 20040108, end: 20040401
  2. ROBAXIN [Concomitant]
     Dates: start: 20020101, end: 20040201
  3. AGGRENOX [Concomitant]
  4. DILTIAZEM [Concomitant]
  5. HYDROCODONE BITARTRATE [Concomitant]
  6. LEXAPRO [Concomitant]
  7. EPOGEN [Concomitant]

REACTIONS (3)
  - JAW DISORDER [None]
  - OSTEONECROSIS [None]
  - TOOTH DISORDER [None]
